FAERS Safety Report 12480903 (Version 1)
Quarter: 2016Q2

REPORT INFORMATION
  Report Type: Spontaneous
  Country: US (occurrence: US)
  Receive Date: 20160620
  Receipt Date: 20160620
  Transmission Date: 20160815
  Serious: No
  Sender: FDA-Public Use
  Company Number: US-BAUSCH-BL-2015-022981

PATIENT
  Age: 57 Year
  Sex: Male

DRUGS (2)
  1. PROVENGE [Suspect]
     Active Substance: SIPULEUCEL-T
     Indication: PROSTATE CANCER
     Dosage: 250 ML SINGLE
     Route: 042
     Dates: start: 20150824, end: 20150824
  2. PROVENGE [Suspect]
     Active Substance: SIPULEUCEL-T
     Dosage: 250 ML SINGLE
     Route: 042
     Dates: start: 20150917, end: 20150917

REACTIONS (2)
  - Culture positive [Unknown]
  - Infection [Unknown]

NARRATIVE: CASE EVENT DATE: 2015
